FAERS Safety Report 12279394 (Version 3)
Quarter: 2016Q2

REPORT INFORMATION
  Report Type: Report from Study
  Country: US (occurrence: US)
  Receive Date: 20160418
  Receipt Date: 20160603
  Transmission Date: 20160815
  Serious: Yes (Hospitalization, Other)
  Sender: FDA-Public Use
  Company Number: US-AMGEN-USASL2016046291

PATIENT
  Age: 38 Year
  Sex: Female

DRUGS (12)
  1. DEXAMETHASONE. [Concomitant]
     Active Substance: DEXAMETHASONE
     Dosage: 3 CYCLES
  2. METHADONE [Concomitant]
     Active Substance: METHADONE HYDROCHLORIDE
     Dosage: UNK UNK, QD
  3. POMALYST [Concomitant]
     Active Substance: POMALIDOMIDE
     Dosage: UNK
     Dates: start: 2014
  4. DULOXETINE. [Concomitant]
     Active Substance: DULOXETINE
     Dosage: UNK UNK, QD
  5. CYCLOPHOSPHAMIDE. [Concomitant]
     Active Substance: CYCLOPHOSPHAMIDE
     Dosage: 3 CYCLES
  6. VELCADE [Concomitant]
     Active Substance: BORTEZOMIB
     Dosage: 3 CYCLES
  7. ETOPOSIDE. [Concomitant]
     Active Substance: ETOPOSIDE
     Dosage: 3 CYCLES
  8. KYPROLIS [Suspect]
     Active Substance: CARFILZOMIB
     Indication: PRODUCT USED FOR UNKNOWN INDICATION
     Dosage: UNK
     Route: 065
     Dates: end: 2013
  9. CISPLATIN. [Concomitant]
     Active Substance: CISPLATIN
     Dosage: UNK
  10. NEUPOGEN [Concomitant]
     Active Substance: FILGRASTIM
     Dosage: UNK
  11. THALIDOMIDE [Concomitant]
     Active Substance: THALIDOMIDE
     Dosage: 3 CYCLES
  12. ADRIAMYCIN [Concomitant]
     Active Substance: DOXORUBICIN HYDROCHLORIDE
     Dosage: 3 CYCLES

REACTIONS (4)
  - Cognitive disorder [Unknown]
  - Sinusitis [Unknown]
  - Cytopenia [Unknown]
  - Hospitalisation [Unknown]
